FAERS Safety Report 17739834 (Version 2)
Quarter: 2020Q2

REPORT INFORMATION
  Report Type: Spontaneous
  Country: ES (occurrence: ES)
  Receive Date: 20200504
  Receipt Date: 20200518
  Transmission Date: 20200714
  Serious: Yes (Other)
  Sender: FDA-Public Use
  Company Number: ES-SA-2020SA112811

PATIENT
  Sex: Female
  Weight: 48 kg

DRUGS (2)
  1. NOVORAPID [Concomitant]
     Active Substance: INSULIN ASPART
     Indication: TYPE 2 DIABETES MELLITUS
     Dosage: ACCORDING TO THE [DOSE] REGIMEN
     Route: 058
  2. LANTUS [Suspect]
     Active Substance: INSULIN GLARGINE
     Indication: TYPE 2 DIABETES MELLITUS
     Dosage: 10 IU
     Route: 058

REACTIONS (8)
  - Fall [Unknown]
  - Wrist fracture [Unknown]
  - Blood glucose abnormal [Unknown]
  - Hunger [Unknown]
  - Multiple use of single-use product [Unknown]
  - Hypoglycaemia [Recovered/Resolved]
  - Dizziness [Unknown]
  - Hyperglycaemia [Recovered/Resolved]
